FAERS Safety Report 15103760 (Version 2)
Quarter: 2018Q3

REPORT INFORMATION
  Report Type: Spontaneous
  Country: JP (occurrence: JP)
  Receive Date: 20180703
  Receipt Date: 20180801
  Transmission Date: 20181010
  Serious: Yes (Hospitalization, Other)
  Sender: FDA-Public Use
  Company Number: JP-GILEAD-2018-0340845

PATIENT
  Age: 81 Year
  Sex: Male

DRUGS (20)
  1. BAYASPIRIN [Concomitant]
     Active Substance: ASPIRIN
     Dosage: 100 MG, UNK
  2. LYRICA [Concomitant]
     Active Substance: PREGABALIN
     Dosage: 25 MG, UNK
  3. GLUCONSAN K [Concomitant]
     Active Substance: POTASSIUM GLUCONATE
  4. BESACOLIN [Concomitant]
     Active Substance: BETHANECHOL CHLORIDE
  5. TENOFOVIR DISOPROXIL FUMARATE. [Suspect]
     Active Substance: TENOFOVIR DISOPROXIL FUMARATE
     Dosage: 300 MG, ONCE IN THREE DAYS
     Route: 048
     Dates: start: 20180519
  6. WARFARIN                           /00014803/ [Concomitant]
     Active Substance: WARFARIN
     Dosage: 1 MG, UNK
  7. THYRADIN?S [Concomitant]
     Active Substance: LEVOTHYROXINE
  8. BARACLUDE [Concomitant]
     Active Substance: ENTECAVIR
     Indication: HEPATITIS B
     Dosage: 0.5 MG, QD
  9. BARACLUDE [Concomitant]
     Active Substance: ENTECAVIR
     Dosage: 0.5 MG, ONCE IN THREE DAYS
     Dates: start: 20180519
  10. REBAMIPIDE [Concomitant]
     Active Substance: REBAMIPIDE
     Dosage: 3 DF, UNK
  11. EPERISONE HYDROCHLORIDE [Concomitant]
     Active Substance: EPERISONE HYDROCHLORIDE
     Dosage: 150 MG, UNK
  12. URSODEOXYCHOLIC ACID [Concomitant]
     Active Substance: URSODIOL
     Dosage: 300 MG, UNK
  13. RABEPRAZOLE SODIUM. [Concomitant]
     Active Substance: RABEPRAZOLE SODIUM
     Dosage: 10 MG, UNK
  14. TENOFOVIR DISOPROXIL FUMARATE. [Suspect]
     Active Substance: TENOFOVIR DISOPROXIL FUMARATE
     Indication: HEPATITIS B
     Dosage: 300 MG, QD
     Route: 048
     Dates: end: 20180509
  15. REBAMIPIDE [Concomitant]
     Active Substance: REBAMIPIDE
     Dosage: 3 DF, UNK
  16. EPERISONE HYDROCHLORIDE [Concomitant]
     Active Substance: EPERISONE HYDROCHLORIDE
     Dosage: 150 MG, UNK
  17. RABEPRAZOLE SODIUM. [Concomitant]
     Active Substance: RABEPRAZOLE SODIUM
     Dosage: 10 MG, UNK
  18. CEFTRIAXONE. [Concomitant]
     Active Substance: CEFTRIAXONE
  19. URIEF [Concomitant]
     Active Substance: SILODOSIN
     Dosage: 4 MG, UNK
  20. CALFINA [Concomitant]
     Active Substance: ALFACALCIDOL

REACTIONS (10)
  - Hypocalcaemia [Recovering/Resolving]
  - Pyelonephritis acute [Recovering/Resolving]
  - Diarrhoea [Unknown]
  - Cardiac failure congestive [Unknown]
  - Hypophosphataemia [Unknown]
  - Hypokalaemia [Recovered/Resolved]
  - Colitis [Recovering/Resolving]
  - Renal impairment [Unknown]
  - Pyrexia [Recovering/Resolving]
  - Hypothyroidism [Unknown]

NARRATIVE: CASE EVENT DATE: 20180126
